FAERS Safety Report 18579978 (Version 1)
Quarter: 2020Q4

REPORT INFORMATION
  Report Type: Spontaneous
  Country: DE (occurrence: DE)
  Receive Date: 20201204
  Receipt Date: 20201204
  Transmission Date: 20210114
  Serious: Yes (Other)
  Sender: FDA-Public Use
  Company Number: DE-AMERICAN REGENT INC-20181163

PATIENT
  Age: 30 Year
  Sex: Female

DRUGS (5)
  1. TACROLIMUS. [Suspect]
     Active Substance: TACROLIMUS
     Indication: RENAL TRANSPLANT
  2. FERINJECT [Suspect]
     Active Substance: FERRIC CARBOXYMALTOSE
     Indication: MENORRHAGIA
     Dosage: UNK
  3. TACROLIMUS. [Suspect]
     Active Substance: TACROLIMUS
     Indication: IMMUNOSUPPRESSION
     Dosage: UNK
     Route: 065
  4. PREDNISOLON [Concomitant]
     Active Substance: PREDNISOLONE
     Indication: PRODUCT USED FOR UNKNOWN INDICATION
     Dosage: UNK
     Route: 065
  5. MYFORTIC [Concomitant]
     Active Substance: MYCOPHENOLATE SODIUM
     Indication: PRODUCT USED FOR UNKNOWN INDICATION
     Dosage: UNK
     Route: 065

REACTIONS (5)
  - Product use in unapproved indication [Unknown]
  - Transplant rejection [Unknown]
  - Therapeutic product effect decreased [Unknown]
  - Drug interaction [Unknown]
  - Tubulointerstitial nephritis [Unknown]

NARRATIVE: CASE EVENT DATE: 201805
